FAERS Safety Report 6445597-5 (Version None)
Quarter: 2009Q4

REPORT INFORMATION
  Report Type: 
  Country: None (occurrence: None)
  Receive Date: 20091118
  Receipt Date: 20091118
  Transmission Date: 20100525
  Serious: Yes (Hospitalization)
  Sender: FDA-Public Use
  Company Number: None

PATIENT
  Sex: Female
  Weight: 56.7 kg

DRUGS (3)
  1. CARBOPLATIN [Suspect]
     Dosage: 776 MG
  2. ERBITUX [Suspect]
     Dosage: 3379 MG
  3. TAXOL [Suspect]
     Dosage: 375 MG

REACTIONS (8)
  - ASTHENIA [None]
  - ATRIAL FIBRILLATION [None]
  - BLOOD ALBUMIN DECREASED [None]
  - DECREASED APPETITE [None]
  - HYPOCALCAEMIA [None]
  - NAUSEA [None]
  - SYNCOPE [None]
  - WEIGHT DECREASED [None]
